FAERS Safety Report 19943962 (Version 2)
Quarter: 2021Q4

REPORT INFORMATION
  Report Type: Spontaneous
  Country: US (occurrence: US)
  Receive Date: 20211012
  Receipt Date: 20211207
  Transmission Date: 20220304
  Serious: No
  Sender: FDA-Public Use
  Company Number: US-CELGENE-USA-20211001471

PATIENT
  Sex: Male
  Weight: 81.720 kg

DRUGS (5)
  1. REVLIMID [Suspect]
     Active Substance: LENALIDOMIDE
     Indication: Follicular lymphoma
     Dosage: 20 MILLIGRAM
     Route: 048
     Dates: start: 20210512
  2. REVLIMID [Suspect]
     Active Substance: LENALIDOMIDE
     Indication: Off label use
     Dosage: 15 MILLIGRAM
     Route: 048
     Dates: start: 202110
  3. XANAX [Concomitant]
     Active Substance: ALPRAZOLAM
     Indication: Product used for unknown indication
     Route: 065
  4. IRON [Concomitant]
     Active Substance: IRON
     Indication: Product used for unknown indication
     Route: 065
  5. ZOLOFT [Concomitant]
     Active Substance: SERTRALINE HYDROCHLORIDE
     Indication: Product used for unknown indication
     Route: 065

REACTIONS (4)
  - Ageusia [Recovering/Resolving]
  - Rash pruritic [Not Recovered/Not Resolved]
  - Somnolence [Unknown]
  - Stomatitis [Unknown]

NARRATIVE: CASE EVENT DATE: 20210101
